FAERS Safety Report 11450327 (Version 1)
Quarter: 2015Q3

REPORT INFORMATION
  Report Type: Spontaneous
  Country: US (occurrence: US)
  Receive Date: 20150903
  Receipt Date: 20150903
  Transmission Date: 20151125
  Serious: No
  Sender: FDA-Public Use
  Company Number: US-ROCHE-1072014

PATIENT
  Sex: Male

DRUGS (3)
  1. PEGASYS [Suspect]
     Active Substance: PEGINTERFERON ALFA-2A
     Indication: CHRONIC HEPATITIS C
     Route: 058
     Dates: start: 20120511
  2. RIBAVIRIN. [Suspect]
     Active Substance: RIBAVIRIN
     Indication: CHRONIC HEPATITIS C
     Dosage: BRAND UNKNOWN
     Route: 048
     Dates: start: 20120511
  3. TELAPREVIR [Suspect]
     Active Substance: TELAPREVIR
     Indication: CHRONIC HEPATITIS C
     Route: 065
     Dates: start: 20120511

REACTIONS (8)
  - Injection site pruritus [Unknown]
  - Pruritus [Unknown]
  - Chills [Unknown]
  - Rash [Unknown]
  - Drug dose omission [Unknown]
  - Fatigue [Unknown]
  - Injection site erythema [Unknown]
  - Rash generalised [Unknown]
